FAERS Safety Report 10190354 (Version 2)
Quarter: 2014Q2

REPORT INFORMATION
  Report Type: Spontaneous
  Country: TR (occurrence: TR)
  Receive Date: 20140522
  Receipt Date: 20140530
  Transmission Date: 20141212
  Serious: No
  Sender: FDA-Public Use
  Company Number: TR-ALLERGAN-1410085US

PATIENT
  Age: 4 Year
  Sex: Female

DRUGS (1)
  1. RESTASIS OPHTHALMIC EMULSION 0.05% [Suspect]
     Indication: PRODUCT USED FOR UNKNOWN INDICATION

REACTIONS (3)
  - No adverse event [Unknown]
  - Cataract [None]
  - Plasminogen decreased [None]
